FAERS Safety Report 14969748 (Version 1)
Quarter: 2018Q2

REPORT INFORMATION
  Report Type: Spontaneous
  Country: UM (occurrence: UM)
  Receive Date: 20180512
  Receipt Date: 20180512
  Transmission Date: 20180711
  Serious: Yes (Other)
  Sender: FDA-Public Use
  Company Number: None

PATIENT
  Age: 6 Year
  Sex: Male

DRUGS (1)
  1. MIRALAX [Suspect]
     Active Substance: POLYETHYLENE GLYCOL 3350
     Indication: CONSTIPATION
     Dosage: OTHER STRENGTH:255GM;QUANTITY:3 CAP FULLS 17 GRAMS;?
     Route: 048
     Dates: start: 20180110, end: 20180511

REACTIONS (9)
  - Disturbance in attention [None]
  - Mood swings [None]
  - Therapy change [None]
  - Incorrect drug administration duration [None]
  - Aggression [None]
  - Anxiety [None]
  - Anger [None]
  - Hyperthyroidism [None]
  - Contraindication to medical treatment [None]

NARRATIVE: CASE EVENT DATE: 20180308
